FAERS Safety Report 16916457 (Version 1)
Quarter: 2019Q4

REPORT INFORMATION
  Report Type: Spontaneous
  Country: DE (occurrence: DE)
  Receive Date: 20191014
  Receipt Date: 20191014
  Transmission Date: 20200122
  Serious: Yes (Other)
  Sender: FDA-Public Use
  Company Number: DE-GALDERMA-DE19061457

PATIENT
  Age: 20 Year
  Sex: Female

DRUGS (3)
  1. AMOXICILLIN. [Concomitant]
     Active Substance: AMOXICILLIN
     Indication: GASTROINTESTINAL INFECTION
     Route: 065
  2. DOXYCYCLINE. [Suspect]
     Active Substance: DOXYCYCLINE
     Indication: GASTROINTESTINAL INFECTION
     Route: 065
  3. CIPROFLOXACIN. [Concomitant]
     Active Substance: CIPROFLOXACIN
     Indication: GASTROINTESTINAL INFECTION
     Route: 065

REACTIONS (6)
  - Gastrointestinal infection [Not Recovered/Not Resolved]
  - Sepsis [Unknown]
  - Periostitis [Unknown]
  - Pancreatic disorder [Unknown]
  - Condition aggravated [Not Recovered/Not Resolved]
  - Product use in unapproved indication [Recovered/Resolved]
